FAERS Safety Report 5664618-0 (Version None)
Quarter: 2008Q1

REPORT INFORMATION
  Report Type: 
  Country: None (occurrence: None)
  Receive Date: 20080314
  Receipt Date: 20080310
  Transmission Date: 20080703
  Serious: Yes (Death, Hospitalization)
  Sender: FDA-Public Use
  Company Number: NZ-ASTRAZENECA-2008AC00638

PATIENT
  Age: 20 Year
  Sex: Female

DRUGS (6)
  1. QUETIAPINE FUMARATE [Suspect]
     Indication: MAJOR DEPRESSION
  2. QUETIAPINE FUMARATE [Suspect]
     Indication: PSYCHOTIC BEHAVIOUR
  3. CITALOPRAM [Concomitant]
     Indication: MAJOR DEPRESSION
  4. CITALOPRAM [Concomitant]
     Indication: PSYCHOTIC BEHAVIOUR
  5. BENZTROPINE MESYLATE [Concomitant]
     Indication: MAJOR DEPRESSION
  6. BENZTROPINE MESYLATE [Concomitant]
     Indication: PSYCHOTIC BEHAVIOUR

REACTIONS (3)
  - CONGESTIVE CARDIOMYOPATHY [None]
  - PNEUMONIA [None]
  - PULMONARY EMBOLISM [None]
